FAERS Safety Report 8154269-0 (Version None)
Quarter: 2012Q1

REPORT INFORMATION
  Report Type: 
  Country: None (occurrence: None)
  Receive Date: 20120217
  Receipt Date: 20120217
  Transmission Date: 20120608
  Serious: No
  Sender: FDA-Public Use
  Company Number: None

PATIENT
  Age: 71 Year
  Sex: Male

DRUGS (1)
  1. METHADONE HCL [Suspect]
     Indication: PAIN
     Dosage: 20 MG QID PO
     Route: 048
     Dates: start: 20111201, end: 20111203

REACTIONS (1)
  - ELECTROCARDIOGRAM QT PROLONGED [None]
